FAERS Safety Report 18991662 (Version 1)
Quarter: 2021Q1

REPORT INFORMATION
  Report Type: Spontaneous
  Country: CA (occurrence: CA)
  Receive Date: 20210310
  Receipt Date: 20210310
  Transmission Date: 20210420
  Serious: Yes (Hospitalization, Other)
  Sender: FDA-Public Use
  Company Number: CA-B.I. PHARMACEUTICALS,INC./RIDGEFIELD-2021-BI-087663

PATIENT
  Age: 70 Year
  Sex: Female

DRUGS (15)
  1. CLOZAPINE. [Suspect]
     Active Substance: CLOZAPINE
     Indication: PARKINSON^S DISEASE
  2. AMANTADINE. [Suspect]
     Active Substance: AMANTADINE HYDROCHLORIDE
     Indication: PARKINSON^S DISEASE
  3. NABILONE [Suspect]
     Active Substance: NABILONE
     Indication: PARKINSON^S DISEASE
     Route: 048
  4. CLOZAPINE. [Suspect]
     Active Substance: CLOZAPINE
     Indication: PSYCHOTIC DISORDER
  5. MIRAPEX [Suspect]
     Active Substance: PRAMIPEXOLE DIHYDROCHLORIDE
  6. CARBIDOPA/LEVODOPA [Suspect]
     Active Substance: CARBIDOPA\LEVODOPA
     Indication: PARKINSON^S DISEASE
  7. CLOZAPINE. [Suspect]
     Active Substance: CLOZAPINE
  8. ENTACAPONE. [Suspect]
     Active Substance: ENTACAPONE
     Indication: PARKINSON^S DISEASE
  9. NABILONE [Suspect]
     Active Substance: NABILONE
     Dosage: 2 DOSAGE FORM
  10. MIRAPEX [Suspect]
     Active Substance: PRAMIPEXOLE DIHYDROCHLORIDE
  11. AMANTADINE. [Suspect]
     Active Substance: AMANTADINE HYDROCHLORIDE
     Indication: PSYCHOTIC DISORDER
  12. FLUDROCORTISONE [Suspect]
     Active Substance: FLUDROCORTISONE
     Indication: PSYCHOTIC DISORDER
  13. MIRAPEX [Suspect]
     Active Substance: PRAMIPEXOLE DIHYDROCHLORIDE
     Indication: PARKINSON^S DISEASE
  14. CLOZAPINE. [Suspect]
     Active Substance: CLOZAPINE
  15. QUETIAPINE. [Suspect]
     Active Substance: QUETIAPINE
     Indication: PSYCHOTIC DISORDER
     Route: 048

REACTIONS (8)
  - Acute psychosis [Unknown]
  - Dyskinesia [Unknown]
  - Parkinson^s disease psychosis [Unknown]
  - Dystonia [Unknown]
  - Therapeutic response shortened [Unknown]
  - Psychotic disorder [Unknown]
  - Orthostatic hypotension [Unknown]
  - Therapeutic product effect incomplete [Unknown]
